FAERS Safety Report 26075085 (Version 1)
Quarter: 2025Q4

REPORT INFORMATION
  Report Type: Spontaneous
  Country: US (occurrence: None)
  Receive Date: 20251120
  Receipt Date: 20251120
  Transmission Date: 20260118
  Serious: Yes (Other)
  Sender: FDA-CTU
  Company Number: None

PATIENT
  Age: 65 Year
  Sex: Male

DRUGS (13)
  1. WEGOVY [Suspect]
     Active Substance: SEMAGLUTIDE
     Indication: Diabetes mellitus
     Route: 058
  2. fenofibrate 54mg [Concomitant]
  3. CARIPRAZINE [Concomitant]
     Active Substance: CARIPRAZINE
  4. omega 3 fatty acid 2000 mg [Concomitant]
  5. mylanta 30ml [Concomitant]
  6. ATORVASTATIN [Concomitant]
     Active Substance: ATORVASTATIN
  7. JARDIANCE [Concomitant]
     Active Substance: EMPAGLIFLOZIN
  8. BUPROPION [Concomitant]
     Active Substance: BUPROPION
  9. aspirin chew 81mg [Concomitant]
  10. vitamin D 1000 units [Concomitant]
  11. LISINOPRIL [Concomitant]
     Active Substance: LISINOPRIL
  12. LANTUS [Concomitant]
     Active Substance: INSULIN GLARGINE
  13. metoprolol 12.5mg XL [Concomitant]

REACTIONS (3)
  - Cholelithiasis [None]
  - Intentional dose omission [None]
  - Hypophagia [None]

NARRATIVE: CASE EVENT DATE: 20250824
